FAERS Safety Report 10160998 (Version 1)
Quarter: 2014Q2

REPORT INFORMATION
  Report Type: Spontaneous
  Country: US (occurrence: US)
  Receive Date: 20140508
  Receipt Date: 20140508
  Transmission Date: 20141212
  Serious: No
  Sender: FDA-Public Use
  Company Number: US-PFIZER INC-2014125335

PATIENT
  Age: 42 Year
  Sex: Female
  Weight: 55.78 kg

DRUGS (1)
  1. SERTRALINE HCL [Suspect]
     Indication: ANXIETY
     Dosage: 100 MG, 2X/DAY
     Dates: start: 2004, end: 2005

REACTIONS (1)
  - Drug ineffective [Unknown]
